FAERS Safety Report 8595556-1 (Version None)
Quarter: 2012Q3

REPORT INFORMATION
  Report Type: 
  Country: None (occurrence: None)
  Receive Date: 20120815
  Receipt Date: 20120809
  Transmission Date: 20120928
  Serious: Yes (Other)
  Sender: FDA-Public Use
  Company Number: HU-ASTRAZENECA-2012SE56247

PATIENT
  Age: 78 Year
  Sex: Female

DRUGS (1)
  1. VIMOVO [Suspect]
     Indication: ARTHRALGIA
     Dosage: 500 MG/20 MG TWO TIMES A DAY
     Route: 048

REACTIONS (2)
  - DYSGEUSIA [None]
  - DRY MOUTH [None]
